FAERS Safety Report 6200156-4 (Version None)
Quarter: 2009Q2

REPORT INFORMATION
  Report Type: 
  Country: None (occurrence: None)
  Receive Date: 20090522
  Receipt Date: 20090516
  Transmission Date: 20091009
  Serious: No
  Sender: FDA-Public Use
  Company Number: US-B.I. PHARMACEUTICALS,INC./RIDGEFIELD-2009-BP-06301BP

PATIENT
  Sex: Male

DRUGS (2)
  1. PLACEBO [Suspect]
     Route: 055
  2. SPIRIVA [Suspect]

REACTIONS (1)
  - DRUG DISPENSING ERROR [None]
